FAERS Safety Report 9068561 (Version 2)
Quarter: 2013Q1

REPORT INFORMATION
  Report Type: Spontaneous
  Country: US (occurrence: US)
  Receive Date: 20130206
  Receipt Date: 20130307
  Transmission Date: 20140127
  Serious: Yes (Other)
  Sender: FDA-Public Use
  Company Number: US-FRI-1000042331

PATIENT
  Age: 24 Year
  Sex: Male

DRUGS (2)
  1. VIIBRYD [Suspect]
     Dosage: 10 MG
     Route: 048
     Dates: start: 20121116, end: 20121122
  2. KLONOPIN [Concomitant]
     Indication: ANXIETY
     Dosage: 0.5 MG PRN

REACTIONS (1)
  - Suicidal ideation [Recovered/Resolved]
